FAERS Safety Report 13662043 (Version 2)
Quarter: 2017Q2

REPORT INFORMATION
  Report Type: Spontaneous
  Country: US (occurrence: US)
  Receive Date: 20170616
  Receipt Date: 20170623
  Transmission Date: 20170830
  Serious: No
  Sender: FDA-Public Use
  Company Number: US-GILEAD-2017-0278336

PATIENT
  Age: 58 Year
  Sex: Female
  Weight: 93.4 kg

DRUGS (8)
  1. NEURONTIN [Concomitant]
     Active Substance: GABAPENTIN
     Dosage: 300 MG, UNK
     Route: 048
  2. MOBIC [Concomitant]
     Active Substance: MELOXICAM
     Dosage: 15 MG, UNK
     Route: 048
  3. HARVONI [Suspect]
     Active Substance: LEDIPASVIR\SOFOSBUVIR
     Indication: HEPATITIS C
     Dosage: 1 DF, UNK
     Route: 048
     Dates: start: 20170508
  4. LISINOPRIL HCT                     /01613901/ [Concomitant]
     Dosage: UNK MG, UNK
     Route: 048
  5. VITAMIN B12 [Concomitant]
     Active Substance: CYANOCOBALAMIN
     Dosage: 100 UG, UNK
     Route: 048
  6. CELEXA [Concomitant]
     Active Substance: CITALOPRAM HYDROBROMIDE
     Dosage: 40 MG, UNK
     Route: 048
  7. VITAMIN D                          /00107901/ [Concomitant]
     Active Substance: ERGOCALCIFEROL
     Dosage: 50000 IU, UNK
     Route: 048
  8. AMITRIPTYLINE [Concomitant]
     Active Substance: AMITRIPTYLINE
     Dosage: 10 MG, UNK
     Route: 048

REACTIONS (1)
  - Hepatitis C virus test positive [Unknown]

NARRATIVE: CASE EVENT DATE: 20170508
